FAERS Safety Report 17439736 (Version 1)
Quarter: 2020Q1

REPORT INFORMATION
  Report Type: Spontaneous
  Country: PT (occurrence: FR)
  Receive Date: 20200220
  Receipt Date: 20200220
  Transmission Date: 20200409
  Serious: Yes (Other)
  Sender: FDA-Public Use
  Company Number: PT-SUNOVION-2016SUN003641

PATIENT

DRUGS (3)
  1. ZEBINIX [Suspect]
     Active Substance: ESLICARBAZEPINE ACETATE
     Indication: EPILEPSY
     Dosage: 1200 MILLIGRAM, DAILY
     Route: 048
     Dates: start: 2012
  2. KEPPRA [Concomitant]
     Active Substance: LEVETIRACETAM
     Indication: EPILEPSY
     Dosage: 1250 DOSAGE FORM, DAILY
     Route: 048
     Dates: start: 2003
  3. FYCOMPA [Suspect]
     Active Substance: PERAMPANEL
     Indication: EPILEPSY
     Dosage: 12 MILLIGRAM, DAILY
     Route: 048
     Dates: start: 201409

REACTIONS (3)
  - Polyneuropathy [Not Recovered/Not Resolved]
  - Off label use [Unknown]
  - Fatigue [Unknown]

NARRATIVE: CASE EVENT DATE: 2012
